FAERS Safety Report 8440628-5 (Version None)
Quarter: 2012Q2

REPORT INFORMATION
  Report Type: 
  Country: None (occurrence: None)
  Receive Date: 20120615
  Receipt Date: 20120608
  Transmission Date: 20120825
  Serious: Yes (Hospitalization, Disabling, Other)
  Sender: FDA-Public Use
  Company Number: US-MERCK-1107USA03583

PATIENT
  Age: 70 Year
  Sex: Female
  Weight: 60 kg

DRUGS (3)
  1. FOSAMAX [Suspect]
     Route: 048
     Dates: start: 20040101
  2. FOSAMAX [Suspect]
     Route: 048
     Dates: start: 19980101
  3. FOSAMAX [Suspect]
     Indication: OSTEOPOROSIS
     Route: 048
     Dates: start: 19970101

REACTIONS (84)
  - CARDIAC FAILURE CONGESTIVE [None]
  - HYPERKALAEMIA [None]
  - CONGESTIVE CARDIOMYOPATHY [None]
  - CELLULITIS [None]
  - HYPERLIPIDAEMIA [None]
  - RHEUMATOID ARTHRITIS [None]
  - PLEURAL EFFUSION [None]
  - TRISMUS [None]
  - TOOTH FRACTURE [None]
  - MITRAL VALVE INCOMPETENCE [None]
  - HYPERTENSION [None]
  - DRUG HYPERSENSITIVITY [None]
  - DIVERTICULUM INTESTINAL [None]
  - ATRIAL FIBRILLATION [None]
  - ARTERIOSCLEROSIS [None]
  - TENDON DISORDER [None]
  - SICK SINUS SYNDROME [None]
  - UPPER LIMB FRACTURE [None]
  - GINGIVAL DISORDER [None]
  - ORAL CAVITY FISTULA [None]
  - OESOPHAGEAL STENOSIS [None]
  - AMNESIA [None]
  - FISTULA [None]
  - ANAEMIA [None]
  - APPENDIX DISORDER [None]
  - CORONARY ARTERY DISEASE [None]
  - HIP FRACTURE [None]
  - JAW DISORDER [None]
  - MITRAL VALVE DISEASE [None]
  - ATRIOVENTRICULAR BLOCK COMPLETE [None]
  - CARDIAC MURMUR [None]
  - GASTROINTESTINAL HAEMORRHAGE [None]
  - INFECTION [None]
  - ULCER [None]
  - TYMPANIC MEMBRANE PERFORATION [None]
  - NECK PAIN [None]
  - INFECTED DERMAL CYST [None]
  - CEREBROVASCULAR ACCIDENT [None]
  - ORAL INFECTION [None]
  - CATARACT [None]
  - HAEMORRHAGIC ANAEMIA [None]
  - ACQUIRED OESOPHAGEAL WEB [None]
  - OSTEOMYELITIS [None]
  - TONSILLAR DISORDER [None]
  - RHINITIS [None]
  - NAUSEA [None]
  - DRUG INTOLERANCE [None]
  - ASTHMA [None]
  - ADVERSE DRUG REACTION [None]
  - OSTEONECROSIS OF JAW [None]
  - GASTROOESOPHAGEAL REFLUX DISEASE [None]
  - OVARIAN DISORDER [None]
  - WEIGHT DECREASED [None]
  - MUSCLE STRAIN [None]
  - ARTHRITIS [None]
  - BLOOD CHOLESTEROL INCREASED [None]
  - CHEST PAIN [None]
  - TOOTH ABSCESS [None]
  - ROAD TRAFFIC ACCIDENT [None]
  - STAPHYLOCOCCAL INFECTION [None]
  - INAPPROPRIATE SCHEDULE OF DRUG ADMINISTRATION [None]
  - IMPAIRED HEALING [None]
  - DYSPNOEA [None]
  - BONE LOSS [None]
  - DIARRHOEA [None]
  - CARDIOVASCULAR DISORDER [None]
  - DENTAL CARIES [None]
  - ANIMAL BITE [None]
  - EPIGASTRIC DISCOMFORT [None]
  - WOUND NECROSIS [None]
  - WOUND DEHISCENCE [None]
  - TOOTH DISORDER [None]
  - FISTULA DISCHARGE [None]
  - RENAL FAILURE ACUTE [None]
  - ARTHROPATHY [None]
  - SUBCUTANEOUS ABSCESS [None]
  - BRONCHITIS [None]
  - HIATUS HERNIA [None]
  - GOUT [None]
  - JAW FRACTURE [None]
  - PNEUMONIA [None]
  - PALPITATIONS [None]
  - TOOTH INFECTION [None]
  - SKIN LESION [None]
